FAERS Safety Report 7016251-6 (Version None)
Quarter: 2010Q3

REPORT INFORMATION
  Report Type: 
  Country: None (occurrence: None)
  Receive Date: 20100927
  Receipt Date: 20100922
  Transmission Date: 20110219
  Serious: Yes (Death, Hospitalization)
  Sender: FDA-Public Use
  Company Number: BE-AMGEN-KDC422177

PATIENT
  Age: 64 Year
  Sex: Female

DRUGS (5)
  1. PANITUMUMAB [Suspect]
     Indication: NEOPLASM MALIGNANT
  2. DOXORUBICIN HCL [Suspect]
  3. DAFALGAN [Concomitant]
     Route: 048
     Dates: start: 20100401
  4. DURAGESIC-100 [Concomitant]
     Dates: start: 20100603
  5. POTASSIUM CHLORIDE [Concomitant]
     Dates: start: 20100607, end: 20100630

REACTIONS (2)
  - GENERAL PHYSICAL HEALTH DETERIORATION [None]
  - MALIGNANT NEOPLASM PROGRESSION [None]
